FAERS Safety Report 20898899 (Version 5)
Quarter: 2022Q3

REPORT INFORMATION
  Report Type: Report from Study
  Country: CN (occurrence: CN)
  Receive Date: 20220601
  Receipt Date: 20220923
  Transmission Date: 20221027
  Serious: Yes (Hospitalization)
  Sender: FDA-Public Use
  Company Number: CN-NOVOPROD-921700

PATIENT
  Age: 5 Year
  Sex: Male
  Weight: 15 kg

DRUGS (3)
  1. SOMAPACITAN [Suspect]
     Active Substance: SOMAPACITAN
     Indication: Growth hormone deficiency
     Dosage: 2.4 MG, QW
     Route: 058
     Dates: start: 20220426, end: 20220524
  2. SOMAPACITAN [Suspect]
     Active Substance: SOMAPACITAN
     Dosage: 2.0 MG, QW
     Dates: start: 20220524
  3. HYDROCORTISONE ACETATE [Concomitant]
     Active Substance: HYDROCORTISONE ACETATE

REACTIONS (1)
  - Oedema [Recovered/Resolved]

NARRATIVE: CASE EVENT DATE: 20220504
